FAERS Safety Report 4535850-4 (Version None)
Quarter: 2004Q4

REPORT INFORMATION
  Report Type: 
  Country: None (occurrence: None)
  Receive Date: 20041223
  Receipt Date: 20040423
  Transmission Date: 20050328
  Serious: No
  Sender: FDA-Public Use
  Company Number: US-GLAXOSMITHKLINE-A0508348A

PATIENT
  Age: 53 Year
  Sex: Male

DRUGS (1)
  1. FLONASE [Suspect]
     Indication: ILL-DEFINED DISORDER
     Dosage: 2PUFF PER DAY
     Route: 045
     Dates: start: 20040323

REACTIONS (2)
  - EPISTAXIS [None]
  - SENSATION OF FOREIGN BODY [None]
